FAERS Safety Report 21072049 (Version 1)
Quarter: 2022Q3

REPORT INFORMATION
  Report Type: Spontaneous
  Country: US (occurrence: US)
  Receive Date: 20220712
  Receipt Date: 20220712
  Transmission Date: 20221027
  Serious: No
  Sender: FDA-Public Use
  Company Number: US-NOVOPROD-928155

PATIENT
  Age: 64 Year
  Sex: Male

DRUGS (2)
  1. RYBELSUS [Suspect]
     Active Substance: SEMAGLUTIDE
     Indication: Product used for unknown indication
     Dosage: 3.0 MG
     Route: 048
  2. BENADRYL [Concomitant]
     Active Substance: DIPHENHYDRAMINE HYDROCHLORIDE
     Indication: Adverse drug reaction
     Dosage: UNK
     Route: 065

REACTIONS (11)
  - Chills [Unknown]
  - Feeling jittery [Unknown]
  - Miosis [Unknown]
  - Vision blurred [Unknown]
  - Urinary retention [Unknown]
  - Renal pain [Unknown]
  - Dry mouth [Unknown]
  - Dry throat [Unknown]
  - Throat tightness [Unknown]
  - Pharyngeal swelling [Not Recovered/Not Resolved]
  - Heart rate increased [Not Recovered/Not Resolved]

NARRATIVE: CASE EVENT DATE: 20220501
